FAERS Safety Report 5636888-6 (Version None)
Quarter: 2008Q1

REPORT INFORMATION
  Report Type: 
  Country: None (occurrence: None)
  Receive Date: 20080225
  Receipt Date: 20080213
  Transmission Date: 20080703
  Serious: Yes (Hospitalization)
  Sender: FDA-Public Use
  Company Number: US-ROCHE-469683

PATIENT
  Age: 64 Year
  Sex: Female

DRUGS (10)
  1. CELLCEPT [Suspect]
     Indication: MYASTHENIA GRAVIS
     Dosage: EVERY DAY
     Route: 048
     Dates: start: 20060301, end: 20060301
  2. CELLCEPT [Suspect]
     Route: 048
  3. METFORMIN HCL [Concomitant]
  4. AMLODIPINE [Concomitant]
  5. PANTOPRAZOLE [Concomitant]
  6. PYRIDOSTIGMINE BROMIDE [Concomitant]
  7. LOVASTATIN [Concomitant]
  8. WARFARIN SODIUM [Concomitant]
  9. FLUOXETINE [Concomitant]
     Indication: ANXIETY DISORDER
  10. CLONAZEPAM [Concomitant]
     Indication: ANXIETY DISORDER
     Dosage: 0.5 MG TWICE DAILY AND 1 MG AT BEDTIME

REACTIONS (1)
  - MAJOR DEPRESSION [None]
